FAERS Safety Report 25852203 (Version 1)
Quarter: 2025Q3

REPORT INFORMATION
  Report Type: Spontaneous
  Country: ID (occurrence: ID)
  Receive Date: 20250926
  Receipt Date: 20250926
  Transmission Date: 20251021
  Serious: Yes (Death, Other)
  Sender: NOVARTIS
  Company Number: ID-002147023-NVSC2025ID148510

PATIENT
  Age: 60 Year
  Sex: Female

DRUGS (3)
  1. RIBOCICLIB [Suspect]
     Active Substance: RIBOCICLIB
     Indication: Product used for unknown indication
     Dosage: 400 MG, QD (1X400MG)
     Route: 065
  2. RIBOCICLIB [Suspect]
     Active Substance: RIBOCICLIB
     Route: 065
  3. FEMARA [Suspect]
     Active Substance: LETROZOLE
     Indication: Product used for unknown indication
     Dosage: 2.5 MG, QD (1X1)
     Route: 065

REACTIONS (6)
  - Metastases to central nervous system [Fatal]
  - Malignant neoplasm progression [Fatal]
  - Septic shock [Fatal]
  - Pneumonia [Fatal]
  - Inappropriate schedule of product administration [Fatal]
  - Neutropenia [Unknown]
